FAERS Safety Report 25507000 (Version 1)
Quarter: 2025Q3

REPORT INFORMATION
  Report Type: Report from Study
  Country: EU (occurrence: EU)
  Receive Date: 20250702
  Receipt Date: 20250702
  Transmission Date: 20251020
  Serious: Yes (Hospitalization)
  Sender: ABBVIE
  Company Number: EU-ABBVIE-5672973

PATIENT
  Age: 70 Year
  Sex: Female

DRUGS (2)
  1. CARBIDOPA\LEVODOPA [Suspect]
     Active Substance: CARBIDOPA\LEVODOPA
     Indication: Parkinson^s disease
     Route: 050
     Dates: start: 20210111
  2. CARBIDOPA\LEVODOPA [Suspect]
     Active Substance: CARBIDOPA\LEVODOPA
     Route: 050
     Dates: start: 20240304

REACTIONS (6)
  - Disorientation [Not Recovered/Not Resolved]
  - Hospitalisation [Unknown]
  - Off label use [Unknown]
  - Overdose [Recovering/Resolving]
  - Device connection issue [Unknown]
  - Device dislocation [Unknown]

NARRATIVE: CASE EVENT DATE: 20240304
